FAERS Safety Report 23364006 (Version 1)
Quarter: 2024Q1

REPORT INFORMATION
  Report Type: Spontaneous
  Country: US (occurrence: US)
  Receive Date: 20240104
  Receipt Date: 20240104
  Transmission Date: 20240410
  Serious: No
  Sender: FDA-Public Use
  Company Number: US-OPELLA-2023OHG020728

PATIENT
  Sex: Male

DRUGS (1)
  1. PAIN RELIEVING CREAM LIDOCAINE [Suspect]
     Active Substance: BENZYL ALCOHOL\LIDOCAINE HYDROCHLORIDE
     Indication: Injection site pain

REACTIONS (2)
  - Drug ineffective [Unknown]
  - No adverse event [Unknown]
